FAERS Safety Report 14201988 (Version 1)
Quarter: 2017Q4

REPORT INFORMATION
  Report Type: Spontaneous
  Country: AT (occurrence: AT)
  Receive Date: 20171117
  Receipt Date: 20171117
  Transmission Date: 20180321
  Serious: Yes (Other)
  Sender: FDA-Public Use
  Company Number: AT-009507513-1711AUT004634

PATIENT
  Sex: Male

DRUGS (1)
  1. DIPROGENTA [Suspect]
     Active Substance: BETAMETHASONE DIPROPIONATE\GENTAMICIN SULFATE
     Dosage: UNK
     Route: 061
     Dates: start: 2017, end: 2017

REACTIONS (4)
  - Blindness unilateral [Not Recovered/Not Resolved]
  - Drug ineffective [Recovered/Resolved]
  - Retinal disorder [Not Recovered/Not Resolved]
  - Wrong technique in product usage process [Unknown]

NARRATIVE: CASE EVENT DATE: 2017
